FAERS Safety Report 7369262-5 (Version None)
Quarter: 2011Q1

REPORT INFORMATION
  Report Type: 
  Country: None (occurrence: None)
  Receive Date: 20110314
  Receipt Date: 20110225
  Transmission Date: 20110831
  Serious: Yes (Hospitalization)
  Sender: FDA-Public Use
  Company Number: 2011MA001848

PATIENT
  Age: 81 Year
  Sex: Male

DRUGS (3)
  1. LISINOPRIL [Concomitant]
  2. CHLORTHALIDONE [Concomitant]
  3. DICLOFENAC SODIUM [Suspect]
     Indication: HYPERTENSION
     Dosage: 50 MG;TID;PO
     Route: 048

REACTIONS (10)
  - BLOOD BICARBONATE DECREASED [None]
  - ELECTROCARDIOGRAM CHANGE [None]
  - DEHYDRATION [None]
  - BLOOD SODIUM DECREASED [None]
  - OEDEMA PERIPHERAL [None]
  - NAUSEA [None]
  - TACHYPNOEA [None]
  - RENAL FAILURE ACUTE [None]
  - HYPERKALAEMIA [None]
  - GASTROENTERITIS [None]
